FAERS Safety Report 4748740-9 (Version None)
Quarter: 2005Q3

REPORT INFORMATION
  Report Type: 
  Country: None (occurrence: None)
  Receive Date: 20050819
  Receipt Date: 20050808
  Transmission Date: 20060218
  Serious: Yes (Other)
  Sender: FDA-Public Use
  Company Number: 2005GB01524

PATIENT
  Age: 79 Year
  Sex: Male
  Weight: 84.6 kg

DRUGS (5)
  1. OMEPRAZOLE [Suspect]
     Indication: GASTROOESOPHAGEAL REFLUX DISEASE
     Route: 048
     Dates: start: 20050628, end: 20050728
  2. ATENOLOL [Concomitant]
     Route: 065
     Dates: start: 20011228
  3. LISINOPRIL [Concomitant]
     Route: 065
     Dates: start: 20020308
  4. BENDROFLUMETHIAZIDE [Concomitant]
     Route: 065
     Dates: start: 19981110
  5. ATORVASTATIN [Concomitant]
     Route: 065
     Dates: start: 20041011

REACTIONS (4)
  - DIZZINESS [None]
  - MYALGIA [None]
  - MYOSITIS [None]
  - SOMNOLENCE [None]
